FAERS Safety Report 7437934-X (Version None)
Quarter: 2011Q2

REPORT INFORMATION
  Report Type: 
  Country: None (occurrence: None)
  Receive Date: 20110421
  Receipt Date: 20110421
  Transmission Date: 20111010
  Serious: Yes (Death)
  Sender: FDA-Public Use
  Company Number: None

PATIENT
  Age: 82 Year
  Sex: Female

DRUGS (14)
  1. FENTANYL [Concomitant]
  2. DOCUSATE [Concomitant]
  3. HALOPERIDOL [Concomitant]
  4. OXYCODONE HCL AND ACETAMINOPHEN [Concomitant]
  5. REVLIMID [Suspect]
     Indication: MULTIPLE MYELOMA
     Dosage: 10 MG DAILY ORALLY
     Route: 048
     Dates: start: 20100401, end: 20100501
  6. MORPHINE [Concomitant]
  7. FAMOTIDINE [Concomitant]
  8. PROCHLORPERAZINE TAB [Concomitant]
  9. LORAZEPAM [Concomitant]
  10. SENNA [Concomitant]
  11. SIMVASTATIN [Concomitant]
  12. GLIPIZIDE [Concomitant]
  13. LACTULOSE [Concomitant]
  14. BISACODYL [Concomitant]

REACTIONS (1)
  - PANCYTOPENIA [None]
